FAERS Safety Report 8229345 (Version 3)
Quarter: 2014Q2

REPORT INFORMATION
  Report Type: Spontaneous
  Country: US (occurrence: US)
  Receive Date: 20111104
  Receipt Date: 20140616
  Transmission Date: 20141212
  Serious: Yes (Hospitalization)
  Sender: FDA-Public Use
  Company Number: US-GLAXOSMITHKLINE-A0941925A

PATIENT
  Sex: Male
  Weight: 109.1 kg

DRUGS (3)
  1. AVANDIA [Suspect]
     Indication: DIABETES MELLITUS
     Dosage: 2MG TWICE PER DAY
     Route: 048
     Dates: start: 2005, end: 2006
  2. AVANDAMET [Suspect]
     Indication: DIABETES MELLITUS
     Dosage: 2MG TWICE PER DAY
     Route: 048
     Dates: start: 2005, end: 2006
  3. ACTOS [Concomitant]
     Dosage: 30MG PER DAY
     Dates: end: 20080310

REACTIONS (6)
  - Cardiac failure congestive [Not Recovered/Not Resolved]
  - Myocardial infarction [Unknown]
  - Congestive cardiomyopathy [Unknown]
  - Cerebrovascular accident [Unknown]
  - Cardiac assistance device user [Unknown]
  - Coronary artery disease [Unknown]
